FAERS Safety Report 12616253 (Version 2)
Quarter: 2016Q3

REPORT INFORMATION
  Report Type: Spontaneous
  Country: ES (occurrence: ES)
  Receive Date: 20160802
  Receipt Date: 20160804
  Transmission Date: 20161109
  Serious: Yes (Other)
  Sender: FDA-Public Use
  Company Number: ES-ASTELLAS-2016US029491

PATIENT
  Age: 42 Year
  Sex: Female
  Weight: 52 kg

DRUGS (6)
  1. PENTAMIDINE [Concomitant]
     Active Substance: PENTAMIDINE
     Indication: PRODUCT USED FOR UNKNOWN INDICATION
     Dosage: UNK UNK, UNKNOWN FREQ.
     Route: 065
  2. GLUCANTIME [Concomitant]
     Active Substance: MEGLUMINE ANTIMONIATE
     Indication: PRODUCT USED FOR UNKNOWN INDICATION
     Dosage: UNK UNK, UNKNOWN FREQ.
     Route: 065
  3. BICARBONATE [Concomitant]
     Active Substance: BICARBONATE ION
     Indication: PRODUCT USED FOR UNKNOWN INDICATION
     Dosage: UNK UNK, UNKNOWN FREQ.
     Route: 065
  4. AMBISOME [Suspect]
     Active Substance: AMPHOTERICIN B
     Indication: LEISHMANIASIS
     Route: 042
     Dates: start: 20150813, end: 20150816
  5. METILPREDNISOLONA                  /00049601/ [Concomitant]
     Indication: PRODUCT USED FOR UNKNOWN INDICATION
     Dosage: UNK UNK, UNKNOWN FREQ.
     Route: 065
     Dates: start: 20150814, end: 20150822
  6. SOLTRIM [Suspect]
     Active Substance: SULFAMETHOXAZOLE\TRIMETHOPRIM
     Indication: PNEUMOCYSTIS JIROVECII PNEUMONIA
     Route: 042
     Dates: start: 20150814, end: 20150816

REACTIONS (1)
  - Renal tubular acidosis [Recovered/Resolved]

NARRATIVE: CASE EVENT DATE: 20150816
